FAERS Safety Report 6915176-1 (Version None)
Quarter: 2010Q3

REPORT INFORMATION
  Report Type: 
  Country: None (occurrence: None)
  Receive Date: 20100805
  Receipt Date: 20100805
  Transmission Date: 20110219
  Serious: Yes (Other)
  Sender: FDA-Public Use
  Company Number: None

PATIENT
  Age: 44 Year
  Sex: Male
  Weight: 91.173 kg

DRUGS (11)
  1. SEROQUEL [Suspect]
     Indication: ANXIETY
     Dosage: 200MG BEDTIME PO
     Route: 048
     Dates: start: 20080301, end: 20100804
  2. SEROQUEL [Suspect]
     Indication: GENERALISED ANXIETY DISORDER
     Dosage: 200MG BEDTIME PO
     Route: 048
     Dates: start: 20080301, end: 20100804
  3. SEROQUEL [Suspect]
     Indication: INSOMNIA
     Dosage: 200MG BEDTIME PO
     Route: 048
     Dates: start: 20080301, end: 20100804
  4. SEROQUEL [Suspect]
     Indication: PANIC ATTACK
     Dosage: 200MG BEDTIME PO
     Route: 048
     Dates: start: 20080301, end: 20100804
  5. CLONAZEPAM [Concomitant]
  6. LAMOTRIGINE [Concomitant]
  7. EFFEXOR [Concomitant]
  8. NEXIUM [Concomitant]
  9. SYNTHROID [Concomitant]
  10. GEMFIBROZIL [Concomitant]
  11. FEXOFENADINE [Concomitant]

REACTIONS (2)
  - DYSKINESIA [None]
  - MUSCLE CONTRACTIONS INVOLUNTARY [None]
